FAERS Safety Report 7859803-3 (Version None)
Quarter: 2011Q4

REPORT INFORMATION
  Report Type: 
  Country: None (occurrence: None)
  Receive Date: 20111027
  Receipt Date: 20111021
  Transmission Date: 20120403
  Serious: Yes (Other)
  Sender: FDA-Public Use
  Company Number: US-PFIZER INC-2010018297

PATIENT
  Sex: Female
  Weight: 87.1 kg

DRUGS (3)
  1. TOVIAZ [Suspect]
     Indication: URINARY INCONTINENCE
     Dosage: 4 MG, 1X/DAY
     Route: 048
     Dates: start: 20090101
  2. TOVIAZ [Suspect]
     Indication: HYPERTONIC BLADDER
     Dosage: 6 MG, UNK
  3. ALBUTEROL [Suspect]
     Dosage: UNK

REACTIONS (8)
  - CONSTIPATION [None]
  - MEMORY IMPAIRMENT [None]
  - OROPHARYNGEAL PAIN [None]
  - DRY SKIN [None]
  - THYROID DISORDER [None]
  - DRUG INEFFECTIVE [None]
  - DRY MOUTH [None]
  - WRONG TECHNIQUE IN DRUG USAGE PROCESS [None]
